FAERS Safety Report 16808835 (Version 1)
Quarter: 2019Q3

REPORT INFORMATION
  Report Type: Spontaneous
  Country: US (occurrence: US)
  Receive Date: 20190916
  Receipt Date: 20190916
  Transmission Date: 20191005
  Serious: No
  Sender: FDA-Public Use
  Company Number: US-AUROBINDO-AUR-APU-2018-058295

PATIENT
  Age: 69 Year
  Sex: Female
  Weight: 88.44 kg

DRUGS (2)
  1. ANASTROZOLE. [Concomitant]
     Active Substance: ANASTROZOLE
     Indication: PRODUCT USED FOR UNKNOWN INDICATION
  2. PAROXETINE TABLETS USP 30MG [Suspect]
     Active Substance: PAROXETINE
     Indication: DEPRESSION
     Dosage: 01 DOSAGE FORM, DAILY
     Route: 065

REACTIONS (1)
  - Hyperhidrosis [Unknown]
